FAERS Safety Report 4334632-6 (Version None)
Quarter: 2004Q3

REPORT INFORMATION
  Report Type: 
  Country: None (occurrence: None)
  Receive Date: 20040408
  Receipt Date: 20030916
  Transmission Date: 20050211
  Serious: Yes (Hospitalization, Other)
  Sender: FDA-Public Use
  Company Number: PHRM2003FR02479

PATIENT
  Age: 20 Year
  Sex: Male
  Weight: 63 kg

DRUGS (3)
  1. PROPOFAN [Suspect]
     Indication: LUMBAR PUNCTURE HEADACHE
     Route: 048
     Dates: start: 20030804
  2. TEGRETOL [Suspect]
     Indication: PARTIAL SEIZURES
     Dosage: 600 MG/DAY
     Route: 048
  3. DI-ANTALVIC [Suspect]
     Indication: LUMBAR PUNCTURE HEADACHE
     Route: 048

REACTIONS (15)
  - ANTICONVULSANT DRUG LEVEL INCREASED [None]
  - ATAXIA [None]
  - DIPLOPIA [None]
  - DRUG INTERACTION [None]
  - ENCEPHALITIS VIRAL [None]
  - HEADACHE [None]
  - INFECTION [None]
  - INTRACRANIAL PRESSURE INCREASED [None]
  - LUMBAR PUNCTURE HEADACHE [None]
  - MENINGITIS VIRAL [None]
  - NUCLEAR MAGNETIC RESONANCE IMAGING BRAIN ABNORMAL [None]
  - OPTIC NERVE DISORDER [None]
  - PAPILLOEDEMA [None]
  - RETINAL OEDEMA [None]
  - VISUAL ACUITY REDUCED [None]
